FAERS Safety Report 7739382-1 (Version None)
Quarter: 2011Q3

REPORT INFORMATION
  Report Type: 
  Country: None (occurrence: None)
  Receive Date: 20110909
  Receipt Date: 20110902
  Transmission Date: 20111222
  Serious: Yes (Other)
  Sender: FDA-Public Use
  Company Number: GB-RANBAXY-2011R1-47191

PATIENT
  Age: 76 Year
  Sex: Male

DRUGS (16)
  1. FINASTERIDE [Suspect]
     Dosage: UNK
     Route: 048
     Dates: start: 20100323
  2. SENNA [Suspect]
     Indication: PRODUCT USED FOR UNKNOWN INDICATION
     Dosage: UNK
     Route: 065
  3. FINASTERIDE [Suspect]
     Indication: PRODUCT USED FOR UNKNOWN INDICATION
     Dosage: UNK
     Route: 048
     Dates: start: 20110810
  4. FINASTERIDE [Suspect]
     Dosage: UNK
     Route: 048
     Dates: start: 20100119
  5. FINASTERIDE [Suspect]
     Dosage: UNK
     Route: 048
     Dates: start: 20091127
  6. TAMSULOSIN HCL [Suspect]
     Indication: PRODUCT USED FOR UNKNOWN INDICATION
     Dosage: UNK
     Route: 065
  7. FLECAINIDE ACETATE [Concomitant]
     Indication: PRODUCT USED FOR UNKNOWN INDICATION
     Dosage: 50 MG, BID
     Route: 065
     Dates: start: 20110704
  8. CANDESARTAN CILEXETIL [Suspect]
     Indication: PRODUCT USED FOR UNKNOWN INDICATION
     Dosage: UNK
     Route: 065
  9. FINASTERIDE [Suspect]
     Dosage: UNK
     Route: 048
     Dates: start: 20100616
  10. FINASTERIDE [Suspect]
     Dosage: UNK
     Route: 048
     Dates: start: 20100219
  11. ASPIRIN [Suspect]
     Indication: PRODUCT USED FOR UNKNOWN INDICATION
     Dosage: UNK
     Route: 065
     Dates: start: 20110517
  12. FINASTERIDE [Suspect]
     Dosage: UNK
     Route: 048
     Dates: start: 20100414
  13. FINASTERIDE [Suspect]
     Dosage: UNK
     Route: 048
     Dates: start: 20100519
  14. FINASTERIDE [Suspect]
     Dosage: UNK
     Route: 048
     Dates: start: 20091229
  15. LOSARTAN POTASSIUM [Suspect]
     Indication: PRODUCT USED FOR UNKNOWN INDICATION
     Dosage: 100 MG, QD
     Route: 065
     Dates: start: 20110713
  16. SIMVASTATIN [Suspect]
     Indication: PRODUCT USED FOR UNKNOWN INDICATION
     Dosage: 40 MG, QD
     Route: 065
     Dates: start: 20110704

REACTIONS (3)
  - HAEMATURIA [None]
  - VENTRICULAR EXTRASYSTOLES [None]
  - LOSS OF CONSCIOUSNESS [None]
